FAERS Safety Report 8327576-6 (Version None)
Quarter: 2012Q2

REPORT INFORMATION
  Report Type: 
  Country: None (occurrence: None)
  Receive Date: 20120502
  Receipt Date: 20120423
  Transmission Date: 20120825
  Serious: Yes (Other)
  Sender: FDA-Public Use
  Company Number: US-BAYER-2011-107495

PATIENT
  Age: 20 Year
  Sex: Female
  Weight: 120 kg

DRUGS (10)
  1. DROSPIRENONE AND ETHINYL ESTRADIOL [Suspect]
     Indication: ACNE
  2. YASMIN [Suspect]
     Indication: MUSCLE SPASMS
  3. DROSPIRENONE AND ETHINYL ESTRADIOL [Suspect]
     Indication: MENSTRUAL DISORDER
     Dosage: UNK
     Route: 048
     Dates: start: 20020101, end: 20090101
  4. DROSPIRENONE AND ETHINYL ESTRADIOL [Suspect]
     Indication: PREMENSTRUAL SYNDROME
  5. DROSPIRENONE AND ETHINYL ESTRADIOL [Suspect]
     Indication: MUSCLE SPASMS
  6. BENADRYL [Concomitant]
  7. YASMIN [Suspect]
     Indication: MENSTRUAL DISORDER
     Dosage: UNK
     Route: 048
     Dates: start: 20020101, end: 20090101
  8. YASMIN [Suspect]
     Indication: PREMENSTRUAL SYNDROME
  9. CLARINEX [Concomitant]
  10. YASMIN [Suspect]
     Indication: ACNE

REACTIONS (9)
  - RASH [None]
  - POST CHOLECYSTECTOMY SYNDROME [None]
  - DIARRHOEA [None]
  - GALLBLADDER DISORDER [None]
  - GASTROOESOPHAGEAL REFLUX DISEASE [None]
  - GALLBLADDER PAIN [None]
  - HAEMORRHOIDS [None]
  - MUSCLE SPASMS [None]
  - CHOLECYSTITIS [None]
